FAERS Safety Report 9174256 (Version 1)
Quarter: 2013Q1

REPORT INFORMATION
  Report Type: Spontaneous
  Country: US (occurrence: US)
  Receive Date: 20130320
  Receipt Date: 20130320
  Transmission Date: 20140127
  Serious: Yes (Other)
  Sender: FDA-Public Use
  Company Number: US-BAYER-2013-030803

PATIENT
  Age: 5 Year
  Sex: Male

DRUGS (1)
  1. CIPROFLOXACIN\HYDROCORTISONE [Suspect]
     Indication: EAR TUBE INSERTION
     Dosage: UNK

REACTIONS (4)
  - Convulsion [None]
  - Arthralgia [None]
  - Arthralgia [None]
  - Arthralgia [None]
